FAERS Safety Report 18473311 (Version 2)
Quarter: 2020Q4

REPORT INFORMATION
  Report Type: Spontaneous
  Country: US (occurrence: US)
  Receive Date: 20201106
  Receipt Date: 20201201
  Transmission Date: 20210114
  Serious: No
  Sender: FDA-Public Use
  Company Number: US-BAUSCH-BL-2020-030015

PATIENT
  Age: 80 Year
  Sex: Female
  Weight: 74.84 kg

DRUGS (7)
  1. ELIQUIS [Concomitant]
     Active Substance: APIXABAN
     Indication: ANTICOAGULANT THERAPY
  2. METOPROLOL TARTRATE. [Concomitant]
     Active Substance: METOPROLOL TARTRATE
     Indication: ANTICOAGULANT THERAPY
  3. LATANOPROST. [Suspect]
     Active Substance: LATANOPROST
     Dosage: IN THE AFTERNOON
     Route: 047
     Dates: start: 202009
  4. ZANTAC [Suspect]
     Active Substance: RANITIDINE HYDROCHLORIDE
     Indication: GASTROOESOPHAGEAL REFLUX DISEASE
     Dosage: STARTED YEARS AGO
     Route: 065
  5. FAMOTIDINE. [Suspect]
     Active Substance: FAMOTIDINE
     Indication: ABDOMINAL TENDERNESS
     Route: 065
     Dates: start: 20201012
  6. LATANOPROST. [Suspect]
     Active Substance: LATANOPROST
     Indication: GLAUCOMA
     Dosage: IN BOTH EYES AT BED TIME
     Route: 047
     Dates: start: 20200911, end: 202009
  7. PEPCID [Suspect]
     Active Substance: FAMOTIDINE
     Indication: ABDOMINAL TENDERNESS
     Route: 065
     Dates: start: 20201012

REACTIONS (13)
  - Nausea [Recovered/Resolved]
  - Gastrooesophageal reflux disease [Unknown]
  - Abdominal tenderness [Unknown]
  - Abdominal discomfort [Unknown]
  - Pruritus [Unknown]
  - Abdominal pain [Unknown]
  - Vision blurred [Unknown]
  - Eating disorder [Unknown]
  - Malaise [Unknown]
  - Pain [Unknown]
  - Drug interaction [Unknown]
  - Foreign body in eye [Unknown]
  - Drug hypersensitivity [Unknown]

NARRATIVE: CASE EVENT DATE: 2020
